FAERS Safety Report 5917182-2 (Version None)
Quarter: 2008Q4

REPORT INFORMATION
  Report Type: 
  Country: None (occurrence: None)
  Receive Date: 20081014
  Receipt Date: 20081009
  Transmission Date: 20090506
  Serious: Yes (Hospitalization)
  Sender: FDA-Public Use
  Company Number: FR-BRISTOL-MYERS SQUIBB COMPANY-14363121

PATIENT
  Age: 95 Year
  Sex: Female

DRUGS (8)
  1. HYDREA [Suspect]
     Indication: POLYCYTHAEMIA VERA
     Dates: start: 20080702
  2. KARDEGIC [Concomitant]
     Dosage: KARDEGIC SACHET
     Route: 048
  3. FOSAMAX [Concomitant]
     Dosage: 1 DOSAGE FORM = 1 TABLET
     Route: 048
  4. CACIT D3 [Concomitant]
     Dosage: 1 DOSAGE FORM = 1 TABLET
     Route: 048
  5. STILNOX [Concomitant]
     Dosage: 1 DOSAGE FORM = 1 TABLET
     Route: 048
  6. ATENOLOL [Concomitant]
     Dosage: 1 DOSAGE FORM = TABLET
     Route: 048
  7. INIPOMP [Concomitant]
     Dosage: 1 DOSAGE FORM = TABLET
     Route: 048
  8. DOLIPRANE [Concomitant]
     Route: 048

REACTIONS (1)
  - CYTOLYTIC HEPATITIS [None]
